FAERS Safety Report 5720340-3 (Version None)
Quarter: 2008Q2

REPORT INFORMATION
  Report Type: 
  Country: None (occurrence: None)
  Receive Date: 20080428
  Receipt Date: 20080416
  Transmission Date: 20081010
  Serious: Yes (Hospitalization)
  Sender: FDA-Public Use
  Company Number: FR-PFIZER INC-2008027353

PATIENT
  Sex: Female
  Weight: 65 kg

DRUGS (8)
  1. LYRICA [Suspect]
     Indication: PARAESTHESIA
     Route: 048
     Dates: start: 20071201, end: 20080301
  2. ALPRAZOLAM [Suspect]
     Indication: ANXIETY
     Route: 048
  3. RILUTEK [Concomitant]
     Indication: AMYOTROPHIC LATERAL SCLEROSIS
     Route: 048
  4. SOTALOL HCL [Concomitant]
     Indication: HYPERTENSION
     Route: 048
  5. SCOPODERM [Concomitant]
     Indication: SALIVARY HYPERSECRETION
     Route: 062
  6. DOMPERIDONE [Concomitant]
     Indication: INCREASED UPPER AIRWAY SECRETION
     Route: 048
  7. NORSET [Concomitant]
     Indication: DEPRESSION
     Route: 048
  8. LAROXYL [Concomitant]
     Indication: INSOMNIA
     Route: 048

REACTIONS (1)
  - DYSPNOEA [None]
